FAERS Safety Report 17287308 (Version 1)
Quarter: 2020Q1

REPORT INFORMATION
  Report Type: Spontaneous
  Country: US (occurrence: US)
  Receive Date: 20200120
  Receipt Date: 20200120
  Transmission Date: 20200409
  Serious: No
  Sender: FDA-Public Use
  Company Number: US-GLAXOSMITHKLINE-US2020005570

PATIENT
  Age: 62 Year
  Sex: Female

DRUGS (3)
  1. NUCALA [Suspect]
     Active Substance: MEPOLIZUMAB
     Indication: PRODUCT USED FOR UNKNOWN INDICATION
     Dosage: UNK
     Dates: start: 201906
  2. ALBUTEROL NEBULIZER SOLUTION [Concomitant]
     Active Substance: ALBUTEROL
     Indication: DYSPNOEA
     Dosage: UNK
  3. ALBUTEROL NEBULIZER SOLUTION [Concomitant]
     Active Substance: ALBUTEROL
     Indication: HYPERSENSITIVITY

REACTIONS (5)
  - Hyperhidrosis [Unknown]
  - Feeling hot [Unknown]
  - Dyspnoea [Unknown]
  - Muscle spasms [Unknown]
  - Hypersensitivity [Unknown]

NARRATIVE: CASE EVENT DATE: 20200109
